FAERS Safety Report 7510056-5 (Version None)
Quarter: 2011Q2

REPORT INFORMATION
  Report Type: 
  Country: None (occurrence: None)
  Receive Date: 20110527
  Receipt Date: 20110521
  Transmission Date: 20111010
  Serious: Yes (Death, Hospitalization)
  Sender: FDA-Public Use
  Company Number: US-JNJFOC-20110511204

PATIENT
  Age: 59 Year
  Sex: Male

DRUGS (3)
  1. ACETAMINOPHEN [Suspect]
     Indication: PYREXIA
     Route: 065
     Dates: start: 19970101
  2. ACETAMINOPHEN [Suspect]
     Route: 065
  3. ROBITUSSIN (DEXTROMETHORPHAN) [Suspect]
     Indication: PRODUCT USED FOR UNKNOWN INDICATION
     Route: 065
     Dates: start: 19970101

REACTIONS (1)
  - PNEUMONIA [None]
